FAERS Safety Report 4472634-X (Version None)
Quarter: 2004Q4

REPORT INFORMATION
  Report Type: 
  Country: None (occurrence: None)
  Receive Date: 20041008
  Receipt Date: 20040929
  Transmission Date: 20050328
  Serious: Yes (Hospitalization)
  Sender: FDA-Public Use
  Company Number: 2004-09-1793

PATIENT
  Age: 31 Year
  Sex: Female

DRUGS (11)
  1. CLARINEX [Suspect]
     Indication: COUGH
     Dosage: ORAL
     Route: 048
     Dates: start: 20040517, end: 20040524
  2. ENDOXAN [Suspect]
     Indication: BREAST CANCER
     Dosage: 880 MG INTRAVENOUS
     Route: 042
     Dates: start: 20040510, end: 20040510
  3. FARMORUBICIN [Suspect]
     Indication: BREAST CANCER
     Dosage: 135 MG INTRAVENOUS
     Route: 042
     Dates: start: 20040510, end: 20040510
  4. RULIDE TABLETS (ROXITHROMYCIN) [Suspect]
     Indication: PYREXIA
     Dosage: 300 MG QD ORAL
     Route: 048
     Dates: start: 20040519, end: 20040524
  5. FLUOROURACIL [Suspect]
     Indication: BREAST CANCER
     Dosage: 880 MG INTRAVENOUS
     Route: 042
     Dates: start: 20040510, end: 20040510
  6. POLERY SYRUP [Suspect]
     Indication: COUGH
     Dosage: ORAL
     Route: 048
     Dates: start: 20040517, end: 20040524
  7. ZOPHREN (ONDANSETRON) [Suspect]
     Dosage: 8 MG
     Dates: start: 20040419
  8. ZOPHREN (ONDANSETRON) [Suspect]
     Dosage: 8 MG
     Dates: start: 20040511
  9. DOLIPRANE TABLETS [Suspect]
     Indication: PYREXIA
     Dosage: 500-2500MG QD ORAL
     Route: 048
     Dates: start: 20040519, end: 20040525
  10. ZOPHREN (ONDANSETRON) [Concomitant]
  11. DOLIPRANE [Concomitant]

REACTIONS (4)
  - COUGH [None]
  - CYTOLYTIC HEPATITIS [None]
  - NEUTROPENIA [None]
  - PYREXIA [None]
